FAERS Safety Report 7217404-4 (Version None)
Quarter: 2011Q1

REPORT INFORMATION
  Report Type: 
  Country: None (occurrence: None)
  Receive Date: 20110110
  Receipt Date: 20101229
  Transmission Date: 20110831
  Serious: Yes (Hospitalization)
  Sender: FDA-Public Use
  Company Number: PHHO2010US19529

PATIENT
  Sex: Male
  Weight: 109.75 kg

DRUGS (5)
  1. BLINDED ENALAPRIL [Suspect]
     Dosage: CODE NOT BROKEN
     Dates: start: 20101027
  2. ALISKIREN [Suspect]
  3. BLINDED ALISKIREN [Suspect]
     Dosage: CODE NOT BROKEN
     Dates: start: 20101027
  4. COMPARATOR ENALAPRIL [Suspect]
  5. BLINDED NO TREATMENT RECEIVED [Suspect]
     Dosage: CODE NOT BROKEN
     Dates: start: 20101027

REACTIONS (1)
  - CHEST PAIN [None]
